FAERS Safety Report 15398817 (Version 1)
Quarter: 2018Q3

REPORT INFORMATION
  Report Type: Spontaneous
  Country: US (occurrence: US)
  Receive Date: 20180918
  Receipt Date: 20180918
  Transmission Date: 20181010
  Serious: No
  Sender: FDA-Public Use
  Company Number: US-BRAINTREE LABORATORIES-180382

PATIENT
  Age: 66 Year
  Sex: Female
  Weight: 64.41 kg

DRUGS (1)
  1. SUPREP BOWEL PREP [Suspect]
     Active Substance: MAGNESIUM SULFATE\POTASSIUM SULFATE\SODIUM SULFATE
     Indication: COLONOSCOPY
     Dosage: 1 X 6 OZ. BOTTLE
     Route: 048
     Dates: start: 20180725, end: 20180725

REACTIONS (2)
  - Paraesthesia [None]
  - Peripheral coldness [None]

NARRATIVE: CASE EVENT DATE: 20180725
